FAERS Safety Report 4962710-7 (Version None)
Quarter: 2006Q1

REPORT INFORMATION
  Report Type: 
  Country: None (occurrence: None)
  Receive Date: 20060201
  Receipt Date: 20051202
  Transmission Date: 20060701
  Serious: No
  Sender: FDA-Public Use
  Company Number: 2005PV005285

PATIENT
  Age: 63 Year
  Sex: Male

DRUGS (16)
  1. BYETTA [Suspect]
     Indication: DIABETES MELLITUS NON-INSULIN-DEPENDENT
     Dosage: 5 MCG; BID; SC
     Route: 058
     Dates: start: 20051110, end: 20051121
  2. AMARYL [Concomitant]
  3. METFORMIN [Concomitant]
  4. LANTUS [Concomitant]
  5. ACTOS [Concomitant]
  6. NPH INSULIN [Concomitant]
  7. ZETIA [Concomitant]
  8. LOTENSIN [Concomitant]
  9. NIFEDIPINE [Concomitant]
  10. LIPITOR [Concomitant]
  11. AMBIEN [Concomitant]
  12. PLAVIX [Concomitant]
  13. TRICOR [Concomitant]
  14. FUROSEMIDE [Concomitant]
  15. POTASSIUM CHLORIDE [Concomitant]
  16. FOLTYX [Concomitant]

REACTIONS (1)
  - BLOOD GLUCOSE INCREASED [None]
